FAERS Safety Report 23493088 (Version 3)
Quarter: 2024Q1

REPORT INFORMATION
  Report Type: Report from Study
  Country: AU (occurrence: AU)
  Receive Date: 20240207
  Receipt Date: 20240326
  Transmission Date: 20240410
  Serious: Yes (Death, Hospitalization, Other)
  Sender: FDA-Public Use
  Company Number: AU-ABBVIE-5625938

PATIENT
  Sex: Male

DRUGS (1)
  1. LEUPROLIDE ACETATE [Suspect]
     Active Substance: ISOPROPYL ALCOHOL\LEUPROLIDE ACETATE
     Indication: Prostate cancer
     Route: 030
     Dates: end: 20240129

REACTIONS (4)
  - General physical health deterioration [Fatal]
  - Unevaluable event [Unknown]
  - Fall [Unknown]
  - Cardiac dysfunction [Unknown]
